FAERS Safety Report 16416685 (Version 2)
Quarter: 2019Q2

REPORT INFORMATION
  Report Type: Spontaneous
  Country: BR (occurrence: BR)
  Receive Date: 20190611
  Receipt Date: 20190613
  Transmission Date: 20190711
  Serious: Yes (Other)
  Sender: FDA-Public Use
  Company Number: BR-JNJFOC-20190607584

PATIENT
  Sex: Female

DRUGS (5)
  1. HALDOL [Suspect]
     Active Substance: HALOPERIDOL
     Indication: PRODUCT USED FOR UNKNOWN INDICATION
     Route: 065
  2. DIAZEPAM. [Suspect]
     Active Substance: DIAZEPAM
     Indication: PRODUCT USED FOR UNKNOWN INDICATION
     Route: 065
  3. IMOSEC [Suspect]
     Active Substance: LOPERAMIDE
     Route: 065
  4. IMOSEC [Suspect]
     Active Substance: LOPERAMIDE
     Indication: GASTROINTESTINAL DISORDER
     Route: 065
  5. PHENERGAN [Suspect]
     Active Substance: PROMETHAZINE HYDROCHLORIDE
     Indication: ALOPECIA
     Route: 065

REACTIONS (7)
  - Bladder disorder [Unknown]
  - Off label use [Unknown]
  - Road traffic accident [Unknown]
  - Product use issue [Unknown]
  - Sinusitis [Unknown]
  - Spinal disorder [Unknown]
  - Influenza [Unknown]
